FAERS Safety Report 9285079 (Version 1)
Quarter: 2013Q2

REPORT INFORMATION
  Report Type: Spontaneous
  Country: US (occurrence: US)
  Receive Date: 20130513
  Receipt Date: 20130513
  Transmission Date: 20140414
  Serious: Yes (Hospitalization)
  Sender: FDA-Public Use
  Company Number: US-JNJFOC-20130500766

PATIENT
  Sex: Male

DRUGS (9)
  1. RISPERDAL [Suspect]
     Indication: PRODUCT USED FOR UNKNOWN INDICATION
     Route: 048
     Dates: start: 201203, end: 201205
  2. HALDOL DECANOATE [Concomitant]
     Route: 030
     Dates: end: 20130410
  3. COGENTIN [Concomitant]
     Route: 065
  4. TEGRETOL [Concomitant]
     Route: 065
  5. SEROQUEL [Concomitant]
     Route: 065
  6. PROZAC [Concomitant]
     Route: 065
  7. ARICEPT [Concomitant]
     Route: 065
  8. VISTARIL [Concomitant]
     Dosage: THRICE A DAY AS NEEDED
     Route: 065
  9. PINDOLOL [Concomitant]
     Route: 065

REACTIONS (1)
  - Hospitalisation [Unknown]
